FAERS Safety Report 8085826-8 (Version None)
Quarter: 2012Q1

REPORT INFORMATION
  Report Type: 
  Country: None (occurrence: None)
  Receive Date: 20120128
  Receipt Date: 20110418
  Transmission Date: 20120608
  Serious: No
  Sender: FDA-Public Use
  Company Number: US-ABBOTT-11P-163-0720196-00

PATIENT
  Sex: Female
  Weight: 86.714 kg

DRUGS (16)
  1. WOMAN'S DAILY MULTIVITAMIN [Concomitant]
     Indication: VITAMIN SUPPLEMENTATION
  2. VITAMIN D [Concomitant]
     Indication: VITAMIN SUPPLEMENTATION
  3. ESTRADIOL [Concomitant]
     Indication: PRODUCT USED FOR UNKNOWN INDICATION
  4. LEVOTHYROXINE SODIUM [Concomitant]
     Indication: HYPOTHYROIDISM
  5. POTASSIUM [Concomitant]
     Indication: MINERAL SUPPLEMENTATION
  6. HUMIRA [Suspect]
     Indication: RHEUMATOID ARTHRITIS
     Dates: start: 20030101
  7. CITRACAL [Concomitant]
     Indication: MINERAL SUPPLEMENTATION
  8. PAXIL [Concomitant]
     Indication: PANIC ATTACK
  9. DIAZEPAM [Concomitant]
     Indication: PANIC ATTACK
  10. NEXIUM [Concomitant]
     Indication: GASTROOESOPHAGEAL REFLUX DISEASE
  11. FOLIC ACID [Concomitant]
     Indication: VITAMIN SUPPLEMENTATION
  12. MECLIZINE [Concomitant]
     Indication: MENIERE'S DISEASE
  13. METHOTREXATE [Concomitant]
     Indication: RHEUMATOID ARTHRITIS
  14. HYDROCHLOROTHIAZIDE [Concomitant]
     Indication: HYPERTENSION
  15. BENICAR [Concomitant]
     Indication: HYPERTENSION
  16. HUMIRA [Suspect]

REACTIONS (11)
  - RASH [None]
  - INJECTION SITE PAIN [None]
  - MALAISE [None]
  - OROPHARYNGEAL PAIN [None]
  - JOINT STIFFNESS [None]
  - OEDEMA PERIPHERAL [None]
  - COUGH [None]
  - BACK PAIN [None]
  - UPPER RESPIRATORY TRACT INFECTION [None]
  - ARTHRALGIA [None]
  - DYSPHONIA [None]
